FAERS Safety Report 5339941-X (Version None)
Quarter: 2007Q2

REPORT INFORMATION
  Report Type: 
  Country: None (occurrence: None)
  Receive Date: 20070531
  Receipt Date: 20070521
  Transmission Date: 20071010
  Serious: Yes (Death, Hospitalization)
  Sender: FDA-Public Use
  Company Number: US-AMGEN-US225537

PATIENT
  Age: 42 Year
  Sex: Female

DRUGS (1)
  1. ARANESP [Suspect]
     Indication: ANAEMIA
     Route: 065

REACTIONS (5)
  - ANAEMIA [None]
  - DEATH [None]
  - LIVER DISORDER [None]
  - RENAL DISORDER [None]
  - WEIGHT DECREASED [None]
